FAERS Safety Report 11465101 (Version 2)
Quarter: 2016Q3

REPORT INFORMATION
  Report Type: Spontaneous
  Country: US (occurrence: US)
  Receive Date: 20150907
  Receipt Date: 20160922
  Transmission Date: 20161109
  Serious: Yes (Life-Threatening, Hospitalization, Other)
  Sender: FDA-Public Use
  Company Number: US-PFIZER INC-2015285619

PATIENT
  Age: 62 Year
  Sex: Female

DRUGS (23)
  1. LAMICTAL XR [Interacting]
     Active Substance: LAMOTRIGINE
     Dosage: 200 MG, 2X/DAY (200 MG IN THE MORNING AND 200 MG AT NIGHT)
     Route: 048
  2. ASPIRIN. [Suspect]
     Active Substance: ASPIRIN
  3. VITAMIN D [Concomitant]
     Active Substance: CHOLECALCIFEROL
     Dosage: UNK
  4. LAMICTAL XR [Interacting]
     Active Substance: LAMOTRIGINE
     Dosage: 400 MG, UNK
  5. LAMICTAL [Interacting]
     Active Substance: LAMOTRIGINE
     Indication: SEIZURE
     Dosage: 500 MG, UNK
     Dates: start: 2012
  6. LAMOTRIGINE. [Interacting]
     Active Substance: LAMOTRIGINE
     Indication: EPILEPSY
     Dosage: 500 MG, UNK
     Route: 048
     Dates: start: 20140612
  7. BACTRIM [Interacting]
     Active Substance: SULFAMETHOXAZOLE\TRIMETHOPRIM
     Indication: PRODUCT USED FOR UNKNOWN INDICATION
     Dosage: UNK
  8. LAMICTAL XR [Interacting]
     Active Substance: LAMOTRIGINE
     Dosage: UNK
     Dates: start: 2012
  9. LAMICTAL XR [Interacting]
     Active Substance: LAMOTRIGINE
     Dosage: 600 MG, UNK
  10. CELEXA [Concomitant]
     Active Substance: CITALOPRAM HYDROBROMIDE
     Dosage: UNK
  11. LAMICTAL XR [Interacting]
     Active Substance: LAMOTRIGINE
     Dosage: 400 MG, DAILY
     Dates: start: 2001
  12. LAMICTAL XR [Interacting]
     Active Substance: LAMOTRIGINE
     Indication: SEIZURE
     Dosage: 200 MG, 2X/DAY
     Route: 048
     Dates: start: 2002
  13. LAMICTAL XR [Interacting]
     Active Substance: LAMOTRIGINE
     Dosage: 500 MG, 1X/DAY (200MG IN MORNING AND 300MG AT NIGHT)
  14. LAMICTAL XR [Interacting]
     Active Substance: LAMOTRIGINE
     Dosage: 400 MG, 1X/DAY
     Route: 048
     Dates: start: 2001
  15. LAMICTAL XR [Interacting]
     Active Substance: LAMOTRIGINE
     Dosage: 500 MG, 1X/DAY
     Route: 048
     Dates: start: 2002
  16. LAMICTAL [Interacting]
     Active Substance: LAMOTRIGINE
     Dosage: 400 MG, UNK
  17. DEPAKOTE [Interacting]
     Active Substance: DIVALPROEX SODIUM
     Indication: PRODUCT USED FOR UNKNOWN INDICATION
     Dosage: UNK
  18. TRAZODONE [Concomitant]
     Active Substance: TRAZODONE HYDROCHLORIDE
     Dosage: UNK
  19. LYRICA [Suspect]
     Active Substance: PREGABALIN
     Indication: PRODUCT USED FOR UNKNOWN INDICATION
     Dosage: UNK
  20. LAMICTAL [Interacting]
     Active Substance: LAMOTRIGINE
     Indication: EPILEPSY
     Dosage: 600 MG, UNK
     Route: 048
     Dates: start: 2012
  21. ZONEGRAN [Interacting]
     Active Substance: ZONISAMIDE
     Indication: PRODUCT USED FOR UNKNOWN INDICATION
     Dosage: 400 MG, UNK
     Dates: start: 201312
  22. VITAMIN B2 [Concomitant]
     Active Substance: RIBOFLAVIN
  23. CEREFOLIN NAC [Concomitant]
     Dosage: UNK

REACTIONS (23)
  - Overdose [Unknown]
  - Drug hypersensitivity [Unknown]
  - Urticaria [Not Recovered/Not Resolved]
  - Hospitalisation [Unknown]
  - Suicide attempt [Unknown]
  - Diarrhoea [Not Recovered/Not Resolved]
  - Apparent death [Unknown]
  - Drug interaction [Unknown]
  - Nausea [Not Recovered/Not Resolved]
  - Pruritus [Unknown]
  - Seizure [Recovered/Resolved]
  - Gastrointestinal disorder [Unknown]
  - Anticonvulsant drug level increased [Unknown]
  - Arthralgia [Recovered/Resolved]
  - Mental disorder [Unknown]
  - Adverse drug reaction [Unknown]
  - Fall [Unknown]
  - Rash [Not Recovered/Not Resolved]
  - Adverse event [Unknown]
  - Drug ineffective [Unknown]
  - Joint swelling [Recovered/Resolved]
  - Anticonvulsant drug level decreased [Recovered/Resolved]
  - Scratch [Unknown]

NARRATIVE: CASE EVENT DATE: 201111
